FAERS Safety Report 7113007-0 (Version None)
Quarter: 2010Q4

REPORT INFORMATION
  Report Type: 
  Country: None (occurrence: None)
  Receive Date: 20101119
  Receipt Date: 20101108
  Transmission Date: 20110411
  Serious: Yes (Other)
  Sender: FDA-Public Use
  Company Number: US-JNJFOC-20100205077

PATIENT
  Age: 40 Year
  Sex: Female
  Weight: 110 kg

DRUGS (6)
  1. TOPAMAX [Suspect]
     Indication: ILL-DEFINED DISORDER
     Route: 065
  2. TANEZUMAB [Suspect]
     Indication: OSTEOARTHRITIS
     Route: 042
  3. TRINESSA [Concomitant]
     Indication: CONTRACEPTION
     Route: 048
  4. MULTI-VITAMINS [Concomitant]
     Route: 065
  5. XYZAL [Concomitant]
     Route: 065
  6. IRON [Concomitant]
     Route: 065

REACTIONS (2)
  - ABORTION SPONTANEOUS [None]
  - DRUG EXPOSURE DURING PREGNANCY [None]
